FAERS Safety Report 22525497 (Version 1)
Quarter: 2023Q2

REPORT INFORMATION
  Report Type: Spontaneous
  Country: US (occurrence: None)
  Receive Date: 20230605
  Receipt Date: 20230605
  Transmission Date: 20230722
  Serious: Yes (Other)
  Sender: FDA-Public Use
  Company Number: None

PATIENT
  Age: 79 Year
  Sex: Female

DRUGS (2)
  1. ELIQUIS [Suspect]
     Active Substance: APIXABAN
  2. LOSARTAN [Concomitant]
     Active Substance: LOSARTAN

REACTIONS (6)
  - Nausea [None]
  - Heart rate increased [None]
  - Respiratory rate increased [None]
  - Cardiac flutter [None]
  - Blood pressure fluctuation [None]
  - Coronary artery disease [None]

NARRATIVE: CASE EVENT DATE: 20220723
